FAERS Safety Report 18160228 (Version 1)
Quarter: 2020Q3

REPORT INFORMATION
  Report Type: Spontaneous
  Country: US (occurrence: US)
  Receive Date: 20200818
  Receipt Date: 20200818
  Transmission Date: 20201103
  Serious: Yes (Hospitalization, Other)
  Sender: FDA-Public Use
  Company Number: US-CPL-001897

PATIENT
  Age: 76 Year
  Sex: Female

DRUGS (10)
  1. HYDRALAZINE/HYDRALAZINE HYDROCHLORIDE [Suspect]
     Active Substance: HYDRALAZINE HYDROCHLORIDE
     Indication: HYPERTENSION
     Dosage: 100 MG EVERY EIGHT HOURS
  2. AMLODIPINE [Concomitant]
     Active Substance: AMLODIPINE BESYLATE
     Dosage: 5 MG DAILY
  3. LOSARTAN. [Concomitant]
     Active Substance: LOSARTAN
     Dosage: 100 MG DAILY
  4. CEFTRIAXONE. [Concomitant]
     Active Substance: CEFTRIAXONE
     Indication: RESPIRATORY FAILURE
  5. PREDNISONE. [Concomitant]
     Active Substance: PREDNISONE
     Indication: IMMUNOSUPPRESSION
  6. ATENOLOL/ATENOLOL HYDROCHLORIDE [Concomitant]
     Active Substance: ATENOLOL HYDROCHLORIDE
     Dosage: 50?MG DAILY
  7. ISOSORBIDE. [Concomitant]
     Active Substance: ISOSORBIDE
     Dosage: 60 MG DAILY
  8. ASPIRIN. [Concomitant]
     Active Substance: ASPIRIN
     Dosage: 81 MG DAILY
  9. CLOPIDOGREL [Concomitant]
     Active Substance: CLOPIDOGREL BISULFATE
     Dosage: 75 MG DAILY
  10. ATORVASTATIN [Concomitant]
     Active Substance: ATORVASTATIN
     Dosage: 10 MG DAILY

REACTIONS (2)
  - Lupus nephritis [Not Recovered/Not Resolved]
  - Vasculitis [Not Recovered/Not Resolved]
